FAERS Safety Report 9552142 (Version 1)
Quarter: 2013Q3

REPORT INFORMATION
  Report Type: Spontaneous
  Country: US (occurrence: US)
  Receive Date: 20130925
  Receipt Date: 20130925
  Transmission Date: 20140515
  Serious: Yes (Hospitalization, Other)
  Sender: FDA-Public Use
  Company Number: PHEH2013US019905

PATIENT
  Age: 50 Year
  Sex: Female
  Weight: 50.8 kg

DRUGS (2)
  1. AFINITOR [Suspect]
     Indication: BREAST CANCER
     Dosage: 5 MG, QD
     Route: 048
     Dates: start: 20130717, end: 20130813
  2. AFINITOR [Suspect]
     Dosage: 5 MG, QOD
     Route: 048

REACTIONS (4)
  - Thrombosis [Recovered/Resolved]
  - Liver disorder [Unknown]
  - Pain [Unknown]
  - Headache [Unknown]
